FAERS Safety Report 9765196 (Version 1)
Quarter: 2013Q4

REPORT INFORMATION
  Report Type: Spontaneous
  Country: US (occurrence: US)
  Receive Date: 20131217
  Receipt Date: 20131217
  Transmission Date: 20140711
  Serious: Yes (Other)
  Sender: FDA-Public Use
  Company Number: US-GLAXOSMITHKLINE-A1024548A

PATIENT
  Age: 70 Year
  Sex: Male

DRUGS (7)
  1. SORIATANE [Suspect]
     Indication: PSORIASIS
     Dosage: 25MG PER DAY
     Route: 048
     Dates: start: 201304
  2. LUMIGAN [Concomitant]
  3. LISINOPRIL [Concomitant]
  4. SIMVASTATIN [Concomitant]
  5. HYDROCHLOROTHIAZIDE [Concomitant]
  6. GLUCOPHAGE [Concomitant]
  7. CLOBETASOL [Concomitant]
     Route: 061

REACTIONS (1)
  - Psoriasis [Not Recovered/Not Resolved]
